FAERS Safety Report 10983512 (Version 1)
Quarter: 2015Q2

REPORT INFORMATION
  Report Type: Spontaneous
  Country: DK (occurrence: DK)
  Receive Date: 20150403
  Receipt Date: 20150403
  Transmission Date: 20150821
  Serious: Yes (Life-Threatening, Hospitalization, Other)
  Sender: FDA-Public Use
  Company Number: DK-EMD SERONO-E2B_80008407

PATIENT
  Age: 36 Year
  Sex: Female
  Weight: 70 kg

DRUGS (2)
  1. REBIF [Suspect]
     Active Substance: INTERFERON BETA-1A
     Indication: PRODUCT USED FOR UNKNOWN INDICATION
     Dosage: UNK UKN, UNK, 10-MAY-2012
  2. GILENYA [Suspect]
     Active Substance: FINGOLIMOD HYDROCHLORIDE
     Indication: MULTIPLE SCLEROSIS
     Dosage: 0.5 MG, QD
     Route: 048
     Dates: start: 20120309, end: 20120513

REACTIONS (14)
  - Appendicitis perforated [Recovered/Resolved]
  - Abdominal abscess [Recovered/Resolved]
  - Acute disseminated encephalomyelitis [Recovering/Resolving]
  - Haemangioma [Unknown]
  - Multiple sclerosis relapse [Recovering/Resolving]
  - Peritonitis [Recovering/Resolving]
  - Sinus polyp [Unknown]
  - Aphasia [Recovering/Resolving]
  - JC virus infection [Unknown]
  - Pelvic fluid collection [Recovered/Resolved]
  - Cognitive disorder [Recovering/Resolving]
  - Quadriplegia [Unknown]
  - Central nervous system lesion [Unknown]
  - Hemiparesis [Recovering/Resolving]

NARRATIVE: CASE EVENT DATE: 20120420
